FAERS Safety Report 7437542-0 (Version None)
Quarter: 2011Q2

REPORT INFORMATION
  Report Type: 
  Country: None (occurrence: None)
  Receive Date: 20110426
  Receipt Date: 20110422
  Transmission Date: 20111010
  Serious: Yes (Life-Threatening, Hospitalization, Other)
  Sender: FDA-Public Use
  Company Number: US-ASTRAZENECA-2011SE08966

PATIENT
  Age: 60 Year
  Sex: Male
  Weight: 102.1 kg

DRUGS (18)
  1. PROZAC [Concomitant]
     Indication: DEPRESSION
     Route: 048
     Dates: start: 20080101
  2. SEROQUEL [Suspect]
     Indication: BIPOLAR I DISORDER
     Route: 048
     Dates: start: 20070101
  3. LOVASTATIN [Concomitant]
  4. NEURONTIN [Concomitant]
  5. METFORMIN [Concomitant]
  6. SEROQUEL [Suspect]
     Route: 048
     Dates: start: 20080101
  7. LISINOPRIL [Concomitant]
  8. NEXIUM [Suspect]
     Route: 048
     Dates: start: 20080101
  9. SEROQUEL [Suspect]
     Indication: DEPRESSION
     Route: 048
     Dates: start: 20070101
  10. ALLOPURINOL [Concomitant]
  11. SEROQUEL [Suspect]
     Route: 048
     Dates: start: 20080101
  12. SEROQUEL [Suspect]
     Route: 048
     Dates: start: 20080101
  13. GABAPENTIN [Concomitant]
  14. TRAZODONE HCL [Concomitant]
  15. NEXIUM [Suspect]
     Indication: GASTROOESOPHAGEAL REFLUX DISEASE
     Route: 048
     Dates: start: 20070101
  16. NEXIUM [Suspect]
     Route: 048
     Dates: start: 20070101
  17. SEROQUEL [Suspect]
     Indication: BIPOLAR DISORDER
     Route: 048
     Dates: start: 20070101
  18. NEXIUM [Suspect]
     Route: 048
     Dates: start: 20080101

REACTIONS (4)
  - DYSPNOEA [None]
  - LUNG NEOPLASM MALIGNANT [None]
  - WHEEZING [None]
  - LUNG DISORDER [None]
